FAERS Safety Report 8767127 (Version 1)
Quarter: 2012Q4

REPORT INFORMATION
  Report Type: 
  Country: US (occurrence: US)
  Receive Date: 20120904
  Receipt Date: 20120904
  Transmission Date: 20130627
  Serious: No
  Sender: FDA-Public Use
  Company Number: US-PFIZER INC-2012214291

PATIENT
  Age: 51 Year
  Sex: Female
  Weight: 79.37 kg

DRUGS (5)
  1. PREMPRO [Suspect]
     Indication: HOT FLUSH
     Dosage: 1 DF, 1x/day, (0.625/2.5 mg)
     Route: 048
     Dates: start: 2008, end: 2010
  2. PREMPRO [Suspect]
     Dosage: 1 DF, 1x/day, (0.45/1.5 mg)
     Route: 048
     Dates: start: 2010, end: 201006
  3. PREMPRO [Suspect]
     Dosage: 1 DF, 1x/day, (0.625/2.5 mg)
     Route: 048
     Dates: start: 201006, end: 201208
  4. CYMBALTA [Concomitant]
     Dosage: 60 mg, 1x/day
  5. CLARITIN [Concomitant]
     Indication: HYPERSENSITIVITY
     Dosage: 10 mg, UNK

REACTIONS (6)
  - Night sweats [Not Recovered/Not Resolved]
  - Irritability [Not Recovered/Not Resolved]
  - Fatigue [Not Recovered/Not Resolved]
  - Sleep disorder [Not Recovered/Not Resolved]
  - Middle insomnia [Not Recovered/Not Resolved]
  - Insomnia [Not Recovered/Not Resolved]
